FAERS Safety Report 14208880 (Version 1)
Quarter: 2017Q4

REPORT INFORMATION
  Report Type: Spontaneous
  Country: PR (occurrence: US)
  Receive Date: 20171121
  Receipt Date: 20171121
  Transmission Date: 20180321
  Serious: Yes (Hospitalization)
  Sender: FDA-Public Use
  Company Number: PR-JNJFOC-20171015211

PATIENT
  Age: 57 Year
  Sex: Female

DRUGS (2)
  1. XARELTO [Suspect]
     Active Substance: RIVAROXABAN
     Indication: DEEP VEIN THROMBOSIS
     Dosage: DOSE: 20 MG, 15 MG
     Route: 048
     Dates: start: 20130613, end: 20131226
  2. XARELTO [Suspect]
     Active Substance: RIVAROXABAN
     Indication: DEEP VEIN THROMBOSIS
     Dosage: DOSE: 20 MG, 15 MG
     Route: 048
     Dates: start: 20140120, end: 20140919

REACTIONS (3)
  - Off label use [Unknown]
  - Prescribed underdose [Unknown]
  - Haematemesis [Unknown]

NARRATIVE: CASE EVENT DATE: 20140908
